FAERS Safety Report 16894622 (Version 9)
Quarter: 2020Q3

REPORT INFORMATION
  Report Type: Report from Study
  Country: JP (occurrence: JP)
  Receive Date: 20191008
  Receipt Date: 20200724
  Transmission Date: 20201102
  Serious: Yes (Life-Threatening, Other)
  Sender: FDA-Public Use
  Company Number: JP-ASTELLAS-2019JP022321

PATIENT
  Age: 71 Year
  Sex: Female
  Weight: 65 kg

DRUGS (14)
  1. FEBURIC [Concomitant]
     Active Substance: FEBUXOSTAT
     Indication: HYPERURICAEMIA
     Dosage: 10 MG/DAY, UNKNOWN FREQ.
     Route: 048
     Dates: start: 20190811, end: 20190822
  2. MAGNESIUM OXIDE. [Concomitant]
     Active Substance: MAGNESIUM OXIDE
     Dosage: 990 MG/DAY, UNKNOWN FREQ.
     Route: 048
     Dates: start: 20191118
  3. METHYCOBAL [Concomitant]
     Active Substance: METHYLCOBALAMIN
     Indication: NEUROPATHY PERIPHERAL
     Dosage: 1500 ?G/DAY, UNKNOWN FREQ.
     Route: 048
  4. RECOMODULIN [Concomitant]
     Active Substance: THROMBOMODULIN ALFA
     Indication: DISSEMINATED INTRAVASCULAR COAGULATION
     Dosage: 24320 IU/DAY, UNKNOWN FREQ.
     Route: 065
  5. FLUCONAZOLE. [Concomitant]
     Active Substance: FLUCONAZOLE
     Indication: PROPHYLAXIS
     Dosage: 400 MG/DAY, UNKNOWN FREQ.
     Route: 048
     Dates: start: 20190826, end: 20190912
  6. ASP2215 [Suspect]
     Active Substance: GILTERITINIB
     Route: 048
     Dates: start: 20190913, end: 20200109
  7. ASP2215 [Suspect]
     Active Substance: GILTERITINIB
     Route: 048
     Dates: start: 20200110
  8. GENINAX [Concomitant]
     Active Substance: GARENOXACIN MESYLATE
     Indication: PROPHYLAXIS
     Route: 048
     Dates: start: 20190818
  9. AZUNOL GARGLE LIQUID [Concomitant]
     Indication: STOMATITIS
     Route: 048
     Dates: start: 20191011
  10. FEXOFENADINE HYDROCHLORIDE. [Concomitant]
     Active Substance: FEXOFENADINE HYDROCHLORIDE
     Indication: RHINITIS ALLERGIC
     Dosage: 120 MG/DAY, UNKNOWN FREQ.
     Route: 048
  11. MAGNESIUM OXIDE. [Concomitant]
     Active Substance: MAGNESIUM OXIDE
     Indication: CONSTIPATION
     Dosage: 660 MG/DAY, UNKNOWN FREQ.
     Route: 048
     Dates: start: 20190829
  12. POLARAMINE [Concomitant]
     Active Substance: DEXCHLORPHENIRAMINE MALEATE
     Indication: ALLERGY PROPHYLAXIS
     Route: 065
     Dates: start: 20190810, end: 20191129
  13. ASP2215 [Suspect]
     Active Substance: GILTERITINIB
     Indication: ACUTE MYELOID LEUKAEMIA REFRACTORY
     Route: 048
     Dates: start: 20190809, end: 20190817
  14. SOLU?CORTEF [Concomitant]
     Active Substance: HYDROCORTISONE SODIUM SUCCINATE
     Indication: ALLERGY PROPHYLAXIS
     Route: 065
     Dates: start: 20190810, end: 20191129

REACTIONS (6)
  - Constipation [Recovering/Resolving]
  - Pancytopenia [Recovered/Resolved]
  - Neutrophil count decreased [Recovering/Resolving]
  - Hepatic function abnormal [Recovered/Resolved]
  - Stomatitis [Recovering/Resolving]
  - Renal impairment [Not Recovered/Not Resolved]

NARRATIVE: CASE EVENT DATE: 20190812
